FAERS Safety Report 19809817 (Version 1)
Quarter: 2021Q3

REPORT INFORMATION
  Report Type: Spontaneous
  Country: US (occurrence: US)
  Receive Date: 20210908
  Receipt Date: 20210908
  Transmission Date: 20211014
  Serious: No
  Sender: FDA-Public Use
  Company Number: US-ROCHE-2708427

PATIENT
  Sex: Female

DRUGS (7)
  1. SYNTHROID [Concomitant]
     Active Substance: LEVOTHYROXINE SODIUM
  2. ALECENSA [Suspect]
     Active Substance: ALECTINIB HYDROCHLORIDE
     Dosage: ONGOING YES , TAKE 4 CAPSULES BY MOUTH TWICE DAILY WITH FOOD
     Route: 048
  3. SPIRONOLACTONE. [Concomitant]
     Active Substance: SPIRONOLACTONE
     Indication: ACNE CYSTIC
  4. ALECENSA [Suspect]
     Active Substance: ALECTINIB HYDROCHLORIDE
     Indication: LUNG NEOPLASM MALIGNANT
     Dosage: 4 CAPSULE BY MOUTH TWICE DAILY WITH FOOD, ONGOING YES
     Route: 048
  5. IBUPROFEN. [Concomitant]
     Active Substance: IBUPROFEN
  6. VOLTAREN [Concomitant]
     Active Substance: DICLOFENAC SODIUM
  7. GABAPENTIN. [Concomitant]
     Active Substance: GABAPENTIN

REACTIONS (6)
  - Erythema [Unknown]
  - Fatigue [Recovering/Resolving]
  - Back pain [Unknown]
  - Joint swelling [Unknown]
  - Constipation [Unknown]
  - Fluid retention [Unknown]
